FAERS Safety Report 6022015-2 (Version None)
Quarter: 2008Q4

REPORT INFORMATION
  Report Type: 
  Country: None (occurrence: None)
  Receive Date: 20081229
  Receipt Date: 20081217
  Transmission Date: 20090506
  Serious: Yes (Other)
  Sender: FDA-Public Use
  Company Number: FR-PFIZER INC-2008098644

PATIENT

DRUGS (4)
  1. LYRICA [Suspect]
     Indication: PARTIAL SEIZURES
     Dosage: 75 MG, 2X/DAY
     Route: 048
     Dates: start: 20080517, end: 20080813
  2. KEPPRA [Concomitant]
     Indication: EPILEPSY
     Dosage: 500 MG, 2X/DAY
     Route: 048
  3. TEGRETOL [Concomitant]
     Indication: EPILEPSY
     Dosage: 400 MG, 2X/DAY
     Route: 048
  4. URBANYL [Concomitant]
     Indication: EPILEPSY
     Dosage: 5 MG, 1X/DAY
     Route: 048

REACTIONS (2)
  - DEPRESSION [None]
  - SUICIDAL IDEATION [None]
